FAERS Safety Report 7373718-9 (Version None)
Quarter: 2011Q1

REPORT INFORMATION
  Report Type: 
  Country: None (occurrence: None)
  Receive Date: 20110325
  Receipt Date: 20100505
  Transmission Date: 20110831
  Serious: No
  Sender: FDA-Public Use
  Company Number: US-MYLANLABS-2010S1005177

PATIENT
  Age: 77 Year
  Sex: Female
  Weight: 60.33 kg

DRUGS (10)
  1. ATIVAN [Concomitant]
     Indication: INSOMNIA
     Dosage: (1) PO BID PRN
     Route: 048
  2. TUMS [Concomitant]
  3. PROPRANOLOL [Suspect]
     Indication: BLOOD PRESSURE INCREASED
     Route: 048
     Dates: start: 20070101
  4. HYDROCHLOROTHIAZIDE [Concomitant]
     Indication: BLOOD PRESSURE INCREASED
     Route: 048
     Dates: start: 20060101
  5. MECLIZINE [Concomitant]
     Indication: DIZZINESS
     Dosage: (1) PO TID PRN
     Route: 048
  6. PROPRANOLOL [Suspect]
     Indication: PALPITATIONS
     Route: 048
     Dates: start: 20070101
  7. IBUPROFEN [Concomitant]
  8. MULTIVITAMIN AND MINERAL [Concomitant]
  9. ZYRTEC [Concomitant]
     Indication: SEASONAL ALLERGY
     Route: 048
  10. DILTZAC [Concomitant]
     Dosage: DILTZAC ER 120MG
     Route: 048

REACTIONS (4)
  - BLOOD PRESSURE INCREASED [None]
  - HEART RATE INCREASED [None]
  - DRUG INEFFECTIVE [None]
  - PALPITATIONS [None]
